FAERS Safety Report 18436628 (Version 1)
Quarter: 2020Q4

REPORT INFORMATION
  Report Type: Spontaneous
  Country: NO (occurrence: NO)
  Receive Date: 20201028
  Receipt Date: 20201028
  Transmission Date: 20210114
  Serious: Yes (Other)
  Sender: FDA-Public Use
  Company Number: NO-MYLANLABS-2020M1090060

PATIENT
  Sex: Male

DRUGS (1)
  1. BONDIL? [Suspect]
     Active Substance: ALPROSTADIL
     Indication: ERECTILE DYSFUNCTION
     Dosage: MAX. 2 TIMES DURING 24 HOURS

REACTIONS (1)
  - Drug ineffective [Unknown]
